FAERS Safety Report 4569411-8 (Version None)
Quarter: 2005Q1

REPORT INFORMATION
  Report Type: 
  Country: None (occurrence: None)
  Receive Date: 20050203
  Receipt Date: 20040526
  Transmission Date: 20050727
  Serious: Yes (Hospitalization, Disabling, Other)
  Sender: FDA-Public Use
  Company Number: PHEH2004US05868

PATIENT
  Age: 73 Year
  Sex: Male
  Weight: 79 kg

DRUGS (5)
  1. ZOMETA [Suspect]
     Indication: METASTASES TO BONE
     Dosage: UNK, UNK
     Dates: start: 20021001, end: 20040401
  2. ANAESTHETICS [Concomitant]
  3. ARIMIDEX [Concomitant]
  4. CYTOXAN [Concomitant]
     Indication: BREAST CANCER
     Dates: start: 20010801, end: 20011201
  5. TAXOL [Concomitant]
     Dates: start: 20020101, end: 20020601

REACTIONS (8)
  - CARDIAC OPERATION [None]
  - IMPAIRED HEALING [None]
  - OSTEOMYELITIS [None]
  - OSTEONECROSIS [None]
  - PAIN [None]
  - TOOTH EXTRACTION [None]
  - WOUND DEBRIDEMENT [None]
  - WOUND DRAINAGE [None]
